FAERS Safety Report 10290580 (Version 1)
Quarter: 2014Q3

REPORT INFORMATION
  Report Type: Spontaneous
  Country: CH (occurrence: None)
  Receive Date: 20140708
  Receipt Date: 20140708
  Transmission Date: 20150326
  Serious: Yes (Hospitalization, Other)
  Sender: FDA-Public Use
  Company Number: 7303564

PATIENT
  Age: 40 Year
  Sex: Female

DRUGS (5)
  1. PANTOPRAZOLE [Suspect]
     Active Substance: PANTOPRAZOLE SODIUM
     Indication: PRODUCT USED FOR UNKNOWN INDICATION
     Route: 048
     Dates: end: 20140519
  2. EUTHYROX [Suspect]
     Active Substance: LEVOTHYROXINE SODIUM
     Indication: AUTOIMMUNE THYROIDITIS
     Dosage: THERAPY?FOR YEARS-20-MAY-2014
     Route: 048
     Dates: end: 20140520
  3. DULCOLAX [Concomitant]
     Active Substance: BISACODYL OR DOCUSATE SODIUM
  4. XARELTO [Suspect]
     Active Substance: RIVAROXABAN
     Indication: PULMONARY EMBOLISM
     Route: 048
     Dates: start: 2012, end: 20140519
  5. MAGNESIUM (MAGNESIUM) (MAGNESIUM) [Concomitant]
     Active Substance: MAGNESIUM

REACTIONS (6)
  - Hyperthyroidism [None]
  - Overdose [None]
  - Jaundice [None]
  - Eosinophilia [None]
  - Mixed liver injury [None]
  - Intentional product misuse [None]

NARRATIVE: CASE EVENT DATE: 2014
